FAERS Safety Report 5033698-8 (Version None)
Quarter: 2006Q2

REPORT INFORMATION
  Report Type: 
  Country: None (occurrence: None)
  Receive Date: 20060623
  Receipt Date: 20060620
  Transmission Date: 20061013
  Serious: Yes (Death)
  Sender: FDA-Public Use
  Company Number: PHRM2006FR01832

PATIENT
  Age: 30 Year
  Sex: Female
  Weight: 73 kg

DRUGS (5)
  1. CLOZAPINE [Suspect]
     Indication: SCHIZOPHRENIA
     Dosage: 200 MG, TID
     Route: 048
     Dates: start: 20020615, end: 20041115
  2. SOLIAN [Suspect]
     Indication: SCHIZOPHRENIA
     Dosage: 400 MG, BID
     Route: 048
     Dates: start: 20040115, end: 20041115
  3. TEMESTA [Concomitant]
     Route: 048
     Dates: end: 20041115
  4. MINIRIN [Concomitant]
     Indication: URINARY INCONTINENCE
     Route: 006
     Dates: end: 20041115
  5. MOPRAL [Concomitant]
     Indication: DIAPHRAGMATIC HERNIA
     Dosage: 20 MG, QD
     Route: 048
     Dates: end: 20041115

REACTIONS (7)
  - ABDOMINAL DISTENSION [None]
  - CARDIO-RESPIRATORY ARREST [None]
  - METABOLIC ACIDOSIS [None]
  - NECROTISING COLITIS [None]
  - PORTAL VEIN THROMBOSIS [None]
  - PYREXIA [None]
  - SEPSIS [None]
